FAERS Safety Report 17106480 (Version 4)
Quarter: 2021Q4

REPORT INFORMATION
  Report Type: Report from Study
  Country: US (occurrence: US)
  Receive Date: 20191203
  Receipt Date: 20211005
  Transmission Date: 20220303
  Serious: Yes (Hospitalization, Other)
  Sender: FDA-Public Use
  Company Number: US-SUN PHARMACEUTICAL INDUSTRIES LTD-2019R1-229323

PATIENT
  Age: 7 Year
  Sex: Female
  Weight: 24.1 kg

DRUGS (7)
  1. TEMOZOLOMIDE [Suspect]
     Active Substance: TEMOZOLOMIDE
     Indication: Nephroblastoma
     Dosage: 90 MG, ONCE DAILY (DAYS 1-5 OF 21 DAY CYCLE),
     Route: 048
     Dates: start: 20190819
  2. IRINOTECAN [Suspect]
     Active Substance: IRINOTECAN
     Indication: Nephroblastoma
     Dosage: 44 MG, ONCE DAILY (DAYS 1-5 OF 21 DAY CYCLE),
     Route: 042
     Dates: start: 20190819
  3. PALBOCICLIB [Suspect]
     Active Substance: PALBOCICLIB
     Indication: Nephroblastoma
     Dosage: 75 MG/M2, ONCE DAILY (DAYS 1-14 OF 21 DAY CYCLE)
     Route: 048
     Dates: start: 20190819, end: 20190922
  4. CEFIXIME [Concomitant]
     Active Substance: CEFIXIME
     Indication: Pneumocystis jirovecii pneumonia
     Dosage: UNK
     Route: 065
     Dates: start: 20190817
  5. ZYPREXA [Concomitant]
     Active Substance: OLANZAPINE
     Indication: Nausea
     Dosage: UNK
     Route: 065
     Dates: start: 20190819
  6. LORAZEPAM [Concomitant]
     Active Substance: LORAZEPAM
     Indication: Nausea
     Dosage: UNK
     Route: 065
     Dates: start: 20190819
  7. LIDOCAINE [Concomitant]
     Active Substance: LIDOCAINE
     Indication: Anaesthesia
     Dosage: UNK
     Route: 065
     Dates: start: 20190819

REACTIONS (2)
  - Sepsis [Recovered/Resolved]
  - Shock [Unknown]

NARRATIVE: CASE EVENT DATE: 20190924
